FAERS Safety Report 17771054 (Version 1)
Quarter: 2020Q2

REPORT INFORMATION
  Report Type: Spontaneous
  Country: JP (occurrence: JP)
  Receive Date: 20200512
  Receipt Date: 20200512
  Transmission Date: 20200714
  Serious: Yes (Other)
  Sender: FDA-Public Use
  Company Number: NVSC2020JP123186

PATIENT
  Sex: Male
  Weight: 3.19 kg

DRUGS (1)
  1. BETAMETHASONE. [Suspect]
     Active Substance: BETAMETHASONE
     Indication: FOETAL EXPOSURE DURING PREGNANCY
     Dosage: UNK (MATERNAL DOSE 12 MG, QD, TWICE)
     Route: 064

REACTIONS (2)
  - Foetal exposure during pregnancy [Unknown]
  - Premature baby [Unknown]
